FAERS Safety Report 7245686-1 (Version None)
Quarter: 2011Q1

REPORT INFORMATION
  Report Type: 
  Country: None (occurrence: None)
  Receive Date: 20110126
  Receipt Date: 20110118
  Transmission Date: 20110831
  Serious: Yes (Other)
  Sender: FDA-Public Use
  Company Number: CA-JNJFOC-20110104986

PATIENT
  Sex: Female

DRUGS (4)
  1. REMICADE [Suspect]
     Indication: RHEUMATOID ARTHRITIS
     Route: 042
  2. BLOOD PRESSURE MEDICATION NOS [Concomitant]
     Route: 065
  3. THYROID [Concomitant]
     Route: 065
  4. REMICADE [Suspect]
     Route: 042

REACTIONS (1)
  - KNEE ARTHROPLASTY [None]
